FAERS Safety Report 6138837-3 (Version None)
Quarter: 2009Q1

REPORT INFORMATION
  Report Type: 
  Country: None (occurrence: None)
  Receive Date: 20090331
  Receipt Date: 20090323
  Transmission Date: 20090719
  Serious: No
  Sender: FDA-Public Use
  Company Number: US-B.I. PHARMACEUTICALS,INC./RIDGEFIELD-2009-BP-03663BP

PATIENT
  Age: 47 Year
  Sex: Female

DRUGS (1)
  1. FLOMAX [Suspect]
     Indication: CYSTITIS INTERSTITIAL
     Dosage: .4MG
     Route: 048
     Dates: start: 20070901, end: 20071201

REACTIONS (1)
  - CATARACT [None]
